FAERS Safety Report 24559525 (Version 1)
Quarter: 2024Q4

REPORT INFORMATION
  Report Type: Spontaneous
  Country: RO (occurrence: RO)
  Receive Date: 20241029
  Receipt Date: 20241029
  Transmission Date: 20250115
  Serious: Yes (Other)
  Sender: TEVA
  Company Number: RO-TEVA-VS-3256845

PATIENT
  Sex: Female

DRUGS (1)
  1. COPAXONE [Suspect]
     Active Substance: GLATIRAMER ACETATE
     Indication: Product used for unknown indication
     Dosage: TIME INTERVAL: 0.33333333 WEEKS: DOSAGE: 40 MG/ML
     Route: 065

REACTIONS (11)
  - Abortion spontaneous [Unknown]
  - Fatigue [Unknown]
  - Anaemia [Unknown]
  - Headache [Unknown]
  - Fall [Unknown]
  - Mixed anxiety and depressive disorder [Unknown]
  - Dysphagia [Unknown]
  - Vertigo [Unknown]
  - Asthenia [Unknown]
  - Maternal exposure during pregnancy [Unknown]
  - Multiple sclerosis [Unknown]

NARRATIVE: CASE EVENT DATE: 20220101
